FAERS Safety Report 17115989 (Version 3)
Quarter: 2019Q4

REPORT INFORMATION
  Report Type: Spontaneous
  Country: US (occurrence: US)
  Receive Date: 20191205
  Receipt Date: 20191223
  Transmission Date: 20200122
  Serious: No
  Sender: FDA-Public Use
  Company Number: US-PFIZER INC-2019527162

PATIENT
  Age: 72 Year
  Sex: Female
  Weight: 73.16 kg

DRUGS (1)
  1. IBRANCE [Suspect]
     Active Substance: PALBOCICLIB
     Indication: BREAST CANCER METASTATIC
     Dosage: 125 MG, CYCLIC(D1-21 Q (EVERY) 28D)/DAYS 1-21 Q28D
     Route: 048
     Dates: start: 20191130

REACTIONS (9)
  - Pruritus [Unknown]
  - Increased appetite [Unknown]
  - Stomatitis [Unknown]
  - Visual impairment [Unknown]
  - Headache [Unknown]
  - Hyperaesthesia teeth [Unknown]
  - Vision blurred [Unknown]
  - Diarrhoea [Unknown]
  - Pain of skin [Unknown]

NARRATIVE: CASE EVENT DATE: 2019
